FAERS Safety Report 24798037 (Version 1)
Quarter: 2025Q1

REPORT INFORMATION
  Report Type: Spontaneous
  Country: US (occurrence: US)
  Receive Date: 20250102
  Receipt Date: 20250102
  Transmission Date: 20250409
  Serious: Yes (Hospitalization)
  Sender: BRISTOL-MYERS SQUIBB COMPANY
  Company Number: US-BRISTOL-MYERS SQUIBB COMPANY-2024-201196

PATIENT
  Age: 78 Year
  Sex: Male
  Weight: 110.22 kg

DRUGS (1)
  1. REVLIMID [Suspect]
     Active Substance: LENALIDOMIDE
     Indication: Plasma cell myeloma refractory
     Dosage: ONCE DAILY ON DAYS 1-21 OF 28 DAY CYCLE
     Route: 048

REACTIONS (1)
  - Adverse event [Unknown]
